FAERS Safety Report 8501604-7 (Version None)
Quarter: 2012Q3

REPORT INFORMATION
  Report Type: 
  Country: None (occurrence: None)
  Receive Date: 20120710
  Receipt Date: 20120705
  Transmission Date: 20120928
  Serious: Yes (Other)
  Sender: FDA-Public Use
  Company Number: JP-ROCHE-1050382

PATIENT
  Sex: Male

DRUGS (16)
  1. XOLAIR [Suspect]
     Indication: ASTHMA
     Route: 058
     Dates: start: 20111013
  2. TICLOPIDINE HCL [Concomitant]
  3. XOLAIR [Suspect]
     Dates: start: 20111222, end: 20111222
  4. EPALRESTAT [Concomitant]
  5. PREDNISOLONE [Concomitant]
  6. SINGULAIR [Concomitant]
  7. ISOSORBIDE MONONITRATE [Concomitant]
  8. XOLAIR [Suspect]
     Dates: start: 20111208
  9. GLIMICRON [Concomitant]
  10. QVAR 40 [Concomitant]
     Dates: start: 20110610
  11. BASEN [Concomitant]
  12. ASPIRIN [Concomitant]
  13. LOSARTAN POTASSIUM [Concomitant]
  14. MUCOSOLVAN [Concomitant]
  15. CLEANAL [Concomitant]
  16. ADALAT CC [Concomitant]

REACTIONS (1)
  - VITH NERVE PARALYSIS [None]
